FAERS Safety Report 6504146-3 (Version None)
Quarter: 2009Q4

REPORT INFORMATION
  Report Type: 
  Country: None (occurrence: None)
  Receive Date: 20091217
  Receipt Date: 20091215
  Transmission Date: 20100525
  Serious: Yes (Hospitalization)
  Sender: FDA-Public Use
  Company Number: US-B.I. PHARMACEUTICALS,INC./RIDGEFIELD-2009-BP-13350BP

PATIENT
  Age: 79 Year
  Sex: Male

DRUGS (7)
  1. COMBIVENT [Suspect]
     Indication: BRONCHITIS CHRONIC
     Dosage: 8 PUF
     Route: 055
     Dates: start: 20020101
  2. NIACIN [Concomitant]
     Indication: BLOOD CHOLESTEROL INCREASED
     Dosage: 1000 MG
  3. ZETIA [Concomitant]
     Indication: BLOOD CHOLESTEROL INCREASED
     Dosage: 10 MG
  4. BABY ASPIRIN [Concomitant]
     Indication: CARDIAC DISORDER
     Dosage: 81 MG
  5. PREDNISONE [Concomitant]
     Indication: BRONCHITIS
     Dosage: 10 MG
  6. TRIAMCINOLONE [Concomitant]
     Dosage: 8 PUF
  7. METOPROLOL TARTRATE [Concomitant]

REACTIONS (3)
  - CORONARY ARTERY BYPASS [None]
  - DRUG EFFECT DECREASED [None]
  - DYSGEUSIA [None]
